FAERS Safety Report 24208773 (Version 1)
Quarter: 2024Q3

REPORT INFORMATION
  Report Type: Spontaneous
  Country: UG (occurrence: UG)
  Receive Date: 20240814
  Receipt Date: 20240814
  Transmission Date: 20241016
  Serious: Yes (Other)
  Sender: MYLAN
  Company Number: UG-MYLANLABS-2024M1073734

PATIENT
  Age: 30 Year
  Sex: Female

DRUGS (2)
  1. EFAVIRENZ\EMTRICITABINE\TENOFOVIR DISOPROXIL FUMARATE [Suspect]
     Active Substance: EFAVIRENZ\EMTRICITABINE\TENOFOVIR DISOPROXIL FUMARATE
     Indication: HIV infection
     Dosage: UNK
     Route: 065
     Dates: start: 201301
  2. OMEPRAZOLE [Suspect]
     Active Substance: OMEPRAZOLE
     Indication: Peptic ulcer
     Dosage: 20 MILLIGRAM, BID
     Route: 065
     Dates: start: 2015, end: 2015

REACTIONS (3)
  - Vitamin B12 deficiency [Recovering/Resolving]
  - Neuropathy peripheral [Recovered/Resolved]
  - Optic neuritis [Recovering/Resolving]

NARRATIVE: CASE EVENT DATE: 20180601
